FAERS Safety Report 9859172 (Version 1)
Quarter: 2014Q1

REPORT INFORMATION
  Report Type: Spontaneous
  Country: US (occurrence: US)
  Receive Date: 20140131
  Receipt Date: 20140131
  Transmission Date: 20141002
  Serious: No
  Sender: FDA-Public Use
  Company Number: US-009507513-1401USA013420

PATIENT
  Age: 55 Year
  Sex: Female

DRUGS (1)
  1. HEXADROL TABLETS [Suspect]
     Indication: PLASMA CELL DISORDER
     Dosage: 4 MG, Q6H
     Route: 048

REACTIONS (2)
  - Myopathy [Unknown]
  - Psychotic disorder [Unknown]
